FAERS Safety Report 4334241-9 (Version None)
Quarter: 2004Q2

REPORT INFORMATION
  Report Type: 
  Country: None (occurrence: None)
  Receive Date: 20040402
  Receipt Date: 20040326
  Transmission Date: 20050107
  Serious: Yes (Death, Life-Threatening, Hospitalization)
  Sender: FDA-Public Use
  Company Number: 2004AP01351

PATIENT
  Age: 94 Year
  Sex: Male

DRUGS (5)
  1. CASODEX [Suspect]
     Indication: PROSTATE CANCER
     Dosage: 80 MG PO
     Route: 048
     Dates: start: 20030808, end: 20040228
  2. CASODEX [Suspect]
     Indication: PROSTATE CANCER
     Dosage: 80 MG PO
     Route: 048
     Dates: start: 20040206
  3. NAIXAN [Concomitant]
  4. LEXOTAN [Concomitant]
  5. PURSENNID [Concomitant]

REACTIONS (9)
  - ANAEMIA [None]
  - ANTINUCLEAR ANTIBODY POSITIVE [None]
  - DEHYDRATION [None]
  - HEPATIC FUNCTION ABNORMAL [None]
  - INTERSTITIAL LUNG DISEASE [None]
  - MALIGNANT NEOPLASM PROGRESSION [None]
  - PLEURAL EFFUSION [None]
  - PNEUMONIA [None]
  - PROSTATE CANCER [None]
